FAERS Safety Report 12009536 (Version 1)
Quarter: 2016Q1

REPORT INFORMATION
  Report Type: Spontaneous
  Country: US (occurrence: US)
  Receive Date: 20160205
  Receipt Date: 20160205
  Transmission Date: 20160526
  Serious: No
  Sender: FDA-Public Use
  Company Number: US-PFIZER INC-2016003939

PATIENT
  Age: 48 Year
  Sex: Female

DRUGS (1)
  1. DICLOFENAC SODIUM/MISOPROSTOL [Suspect]
     Active Substance: DICLOFENAC SODIUM\MISOPROSTOL
     Indication: ARTHRITIS
     Dosage: 1 DF, 1X/DAY
     Dates: start: 2011, end: 2011

REACTIONS (2)
  - Drug ineffective [Unknown]
  - Foreign body [None]
